FAERS Safety Report 17542243 (Version 1)
Quarter: 2020Q1

REPORT INFORMATION
  Report Type: Report from Study
  Country: US (occurrence: US)
  Receive Date: 20200313
  Receipt Date: 20200313
  Transmission Date: 20200409
  Serious: Yes (Other)
  Sender: FDA-Public Use
  Company Number: US-JAZZ-2020-US-003514

PATIENT
  Age: 35 Year
  Sex: Male

DRUGS (1)
  1. ASPARAGINASE ERWINIA CHRYSANTHEMI [Suspect]
     Active Substance: ASPARAGINASE ERWINIA CHRYSANTHEMI
     Indication: ACUTE LYMPHOCYTIC LEUKAEMIA
     Dosage: 25,000 IU/M^2, 3 TIMES  A WEEK
     Route: 042

REACTIONS (2)
  - Hepatotoxicity [Unknown]
  - Hypersensitivity [Unknown]
